FAERS Safety Report 14493173 (Version 1)
Quarter: 2018Q1

REPORT INFORMATION
  Report Type: Spontaneous
  Country: US (occurrence: US)
  Receive Date: 20180205
  Receipt Date: 20180205
  Transmission Date: 20180509
  Serious: No
  Sender: FDA-Public Use
  Company Number: None

PATIENT
  Age: 73 Year
  Sex: Female
  Weight: 58.5 kg

DRUGS (6)
  1. VIACTIV [Concomitant]
     Active Substance: CALCIUM\VITAMIN D\VITAMIN K5
  2. PRESERVISION [Concomitant]
     Active Substance: MINERALS\VITAMINS
  3. PHENYTION CHEWABLE [Suspect]
     Active Substance: PHENYTOIN
     Indication: SEIZURE
     Dosage: ?          QUANTITY:1 TABLET(S);?
     Route: 048
     Dates: start: 20180205, end: 20180205
  4. CALCIUM [Concomitant]
     Active Substance: CALCIUM
  5. ALENDRONATE [Concomitant]
     Active Substance: ALENDRONATE SODIUM
  6. EYE VITAMIN [Concomitant]

REACTIONS (3)
  - Product substitution issue [None]
  - Dysgeusia [None]
  - Retching [None]

NARRATIVE: CASE EVENT DATE: 20180205
